FAERS Safety Report 7777519-9 (Version None)
Quarter: 2011Q3

REPORT INFORMATION
  Report Type: 
  Country: None (occurrence: None)
  Receive Date: 20110926
  Receipt Date: 20110919
  Transmission Date: 20111222
  Serious: Yes (Other)
  Sender: FDA-Public Use
  Company Number: US-SANOFI-AVENTIS-2011SA061608

PATIENT
  Age: 84 Year
  Sex: Male

DRUGS (7)
  1. BISMUTH SUBSALICYLATE [Concomitant]
  2. CARDIZEM [Suspect]
     Route: 065
     Dates: start: 20110701
  3. TETRACYCLINE [Concomitant]
  4. LOPRESSOR [Suspect]
     Route: 065
  5. MULTAQ [Suspect]
     Indication: ATRIAL FIBRILLATION
     Route: 048
     Dates: start: 20110724
  6. HYDROXYUREA [Concomitant]
     Indication: PLATELET DISORDER
  7. FLAGYL [Concomitant]

REACTIONS (4)
  - HEART RATE DECREASED [None]
  - THROMBOSIS [None]
  - PAIN IN EXTREMITY [None]
  - ATRIAL FIBRILLATION [None]
